FAERS Safety Report 20051286 (Version 1)
Quarter: 2021Q4

REPORT INFORMATION
  Report Type: Spontaneous
  Country: RO (occurrence: RO)
  Receive Date: 20211110
  Receipt Date: 20211110
  Transmission Date: 20220303
  Serious: Yes (Life-Threatening, Hospitalization)
  Sender: FDA-Public Use
  Company Number: RO-NMA-2021-SP44490

PATIENT
  Age: 32 Year
  Sex: Female
  Weight: 94 kg

DRUGS (2)
  1. NIFEDIPINE [Suspect]
     Active Substance: NIFEDIPINE
     Indication: Gestational hypertension
     Dosage: 20 MG X1/DAY OR AS NEEDED ()
     Route: 065
     Dates: start: 20210308, end: 20210515
  2. METHYLDOPA [Concomitant]
     Active Substance: METHYLDOPA
     Indication: Product used for unknown indication
     Dosage: UNK
     Route: 065

REACTIONS (2)
  - Jaundice [Recovered/Resolved]
  - Drug-induced liver injury [Recovered/Resolved]
